FAERS Safety Report 8330232-1 (Version None)
Quarter: 2012Q2

REPORT INFORMATION
  Report Type: 
  Country: None (occurrence: None)
  Receive Date: 20120502
  Receipt Date: 20120425
  Transmission Date: 20120825
  Serious: No
  Sender: FDA-Public Use
  Company Number: US-B.I. PHARMACEUTICALS,INC./RIDGEFIELD-2012-BP-09478BP

PATIENT
  Sex: Female

DRUGS (7)
  1. ASPIRIN [Concomitant]
     Indication: PROPHYLAXIS
  2. METFORMIN HCL [Concomitant]
     Indication: DIABETES MELLITUS
  3. SPIRIVA [Suspect]
     Indication: CHRONIC OBSTRUCTIVE PULMONARY DISEASE
     Dosage: 18 MCG
     Route: 055
     Dates: start: 20120201, end: 20120421
  4. ZOLOFT [Concomitant]
     Indication: MENOPAUSE
  5. TOPROL-XL [Concomitant]
     Indication: HYPERTENSION
  6. DIOVAN [Concomitant]
     Indication: HYPERTENSION
  7. LIPITOR [Concomitant]
     Indication: BLOOD CHOLESTEROL INCREASED

REACTIONS (1)
  - VISION BLURRED [None]
